FAERS Safety Report 7519247-0 (Version None)
Quarter: 2011Q2

REPORT INFORMATION
  Report Type: 
  Country: None (occurrence: None)
  Receive Date: 20110602
  Receipt Date: 20051003
  Transmission Date: 20111010
  Serious: Yes (Hospitalization, Other)
  Sender: FDA-Public Use
  Company Number: PHEH2005US10342

PATIENT
  Sex: Female

DRUGS (2)
  1. NEORAL [Suspect]
     Indication: RENAL TRANSPLANT
     Dosage: 100 MG, BID
     Route: 048
     Dates: start: 20021021
  2. CELLCEPT [Concomitant]
     Indication: TRANSPLANT REJECTION

REACTIONS (14)
  - VOMITING [None]
  - CHOLELITHIASIS [None]
  - DEHYDRATION [None]
  - LYMPHOCYTE COUNT DECREASED [None]
  - DIARRHOEA [None]
  - NAUSEA [None]
  - RENAL DISORDER [None]
  - HYPOKALAEMIA [None]
  - LEUKOPENIA [None]
  - GASTROENTERITIS [None]
  - ASTHENIA [None]
  - BLOOD POTASSIUM DECREASED [None]
  - CHOLECYSTITIS [None]
  - NEUTROPHIL COUNT DECREASED [None]
